FAERS Safety Report 5790270-X (Version None)
Quarter: 2008Q2

REPORT INFORMATION
  Report Type: 
  Country: None (occurrence: None)
  Receive Date: 20080626
  Receipt Date: 20080513
  Transmission Date: 20081010
  Serious: No
  Sender: FDA-Public Use
  Company Number: A0707371A

PATIENT

DRUGS (1)
  1. ALLI [Suspect]
     Indication: DRUG USE FOR UNKNOWN INDICATION

REACTIONS (7)
  - DRUG INEFFECTIVE [None]
  - FATIGUE [None]
  - FLUID RETENTION [None]
  - GASTROINTESTINAL DISORDER [None]
  - INFECTION [None]
  - IRRITABILITY [None]
  - WEIGHT INCREASED [None]
